FAERS Safety Report 5564580-5 (Version None)
Quarter: 2007Q4

REPORT INFORMATION
  Report Type: 
  Country: None (occurrence: None)
  Receive Date: 20071212
  Receipt Date: 20071203
  Transmission Date: 20080405
  Serious: Yes (Other)
  Sender: FDA-Public Use
  Company Number: 07H-163-0313536-00

PATIENT
  Age: 65 Year
  Sex: Male

DRUGS (24)
  1. DOBUTAMINE HCL IN DEXTROSE 5% [Suspect]
     Indication: CARDIAC FAILURE CONGESTIVE
     Dosage: 3 MCG/KG/MIN, CONTINOUS I.V. INFUSION, 3 MCG/KG/MIN, CONTINUOUS I.V. INFUSION
     Route: 042
     Dates: start: 20060126, end: 20060201
  2. DOBUTAMINE HCL IN DEXTROSE 5% [Suspect]
     Indication: CARDIAC FAILURE CONGESTIVE
     Dosage: 3 MCG/KG/MIN, CONTINOUS I.V. INFUSION, 3 MCG/KG/MIN, CONTINUOUS I.V. INFUSION
     Route: 042
     Dates: start: 20060313
  3. AMIODARONE HCL [Suspect]
     Indication: DRUG USE FOR UNKNOWN INDICATION
     Dosage: ORAL
     Route: 048
  4. CARVEDILOL [Suspect]
     Indication: DRUG USE FOR UNKNOWN INDICATION
     Dosage: 12.5 MG, 2 IN 1 D, ORAL
     Route: 048
  5. SIMVASTATIN [Suspect]
     Indication: DRUG USE FOR UNKNOWN INDICATION
     Dosage: 20 MG, AT BEDTIME; ORAL
     Route: 048
  6. ALBUTEROL [Concomitant]
  7. BUMETANIDE [Concomitant]
  8. CALCIUM ACETATE (CALCIUM ACETATE) [Concomitant]
  9. DOCUSATE SODIUM (DOCUSATE SODIUM) [Concomitant]
  10. EPOETIN ALFA (EPOETIN ALFA) [Concomitant]
  11. FERROUS SULFATE TAB [Concomitant]
  12. FINASTERIDE [Concomitant]
  13. HYDRALAZINE HCL [Concomitant]
  14. ISOPHANE INSULIN (ISOPHANE INSULIN) [Concomitant]
  15. LISPRO INSULIN (INSULIN LISPRO) [Concomitant]
  16. ISOSORBIDE DINITRATE [Concomitant]
  17. METOLAZONE [Concomitant]
  18. NATEGLINIDE [Concomitant]
  19. PANTOPRAZOLE SODIUM [Concomitant]
  20. POTASSIUM CHLORIDE [Concomitant]
  21. SEVELAMER (SEVELAMER) [Concomitant]
  22. TAMSULOSIN HCL [Concomitant]
  23. CALCIUM GLUCONATE [Concomitant]
  24. REGULAR INSULIN [Concomitant]

REACTIONS (3)
  - DRUG INTERACTION [None]
  - HYPOCALCAEMIA [None]
  - MYOCLONUS [None]
